FAERS Safety Report 7118448-3 (Version None)
Quarter: 2010Q4

REPORT INFORMATION
  Report Type: 
  Country: None (occurrence: None)
  Receive Date: 20101123
  Receipt Date: 20101119
  Transmission Date: 20110411
  Serious: Yes (Hospitalization)
  Sender: FDA-Public Use
  Company Number: US-SHIRE-ALL1-2010-06122

PATIENT
  Age: 60 Year
  Sex: Male

DRUGS (1)
  1. FOSRENOL [Suspect]
     Indication: HYPERPHOSPHATAEMIA
     Dosage: UNK MG, OTHER (ONE TABLET WITH MEALS)
     Route: 048
     Dates: start: 20101101

REACTIONS (1)
  - CARDIAC FAILURE CONGESTIVE [None]
